FAERS Safety Report 7910779-X (Version None)
Quarter: 2011Q4

REPORT INFORMATION
  Report Type: 
  Country: None (occurrence: None)
  Receive Date: 20111112
  Receipt Date: 20100111
  Transmission Date: 20120403
  Serious: Yes (Hospitalization)
  Sender: FDA-Public Use
  Company Number: FR-US-EMD SERONO, INC.-220006N09FRA

PATIENT
  Sex: Female
  Weight: 10.9 kg

DRUGS (1)
  1. SAIZEN [Suspect]
     Indication: SMALL FOR DATES BABY
     Dates: start: 20091210

REACTIONS (2)
  - EAR INFECTION [None]
  - TONSILLECTOMY [None]
